FAERS Safety Report 5622328-X (Version None)
Quarter: 2008Q1

REPORT INFORMATION
  Report Type: 
  Country: None (occurrence: None)
  Receive Date: 20080114
  Receipt Date: 20070618
  Transmission Date: 20080703
  Serious: Yes (Other)
  Sender: FDA-Public Use
  Company Number: A03200704019

PATIENT
  Age: 77 Year
  Sex: Male

DRUGS (4)
  1. PLAVIX [Suspect]
     Indication: RETINAL VASCULAR THROMBOSIS
     Dosage: PARENTERAL
     Route: 051
     Dates: start: 20070612, end: 20070612
  2. PLAVIX [Suspect]
     Indication: RETINAL VASCULAR THROMBOSIS
     Dosage: 75 MG QID - ORAL
     Route: 048
  3. GLYCERYL TRINITRATE [Concomitant]
  4. BETA-CHANNGEL BLOCKERS [Concomitant]

REACTIONS (6)
  - ABDOMINAL PAIN [None]
  - BLOOD GLUCOSE INCREASED [None]
  - LIPASE INCREASED [None]
  - NAUSEA [None]
  - PANCREATITIS [None]
  - VOMITING [None]
